FAERS Safety Report 25867777 (Version 1)
Quarter: 2025Q4

REPORT INFORMATION
  Report Type: Spontaneous
  Country: GB (occurrence: GB)
  Receive Date: 20251001
  Receipt Date: 20251001
  Transmission Date: 20260118
  Serious: Yes (Other)
  Sender: TEVA
  Company Number: GB-MHRA-TPP45991371C31523651YC1758040523899

PATIENT
  Age: 79 Year
  Sex: Female
  Weight: 69 kg

DRUGS (5)
  1. DOXYCYCLINE [Suspect]
     Active Substance: DOXYCYCLINE
     Indication: Ill-defined disorder
     Dosage: TWO CAPSULES ON THE FIRST DAY, THEN ONE DAILY, ...,DURATION: 6 DAYS
     Route: 065
     Dates: start: 20250911, end: 20250916
  2. CLARITHROMYCIN [Concomitant]
     Active Substance: CLARITHROMYCIN
     Indication: Ill-defined disorder
     Dosage: TAKE ONE TWICE DAILY FOR 5 DAYS, 2 DOSAGE FORMS DAILY, DURATION: 6 DAYS
     Dates: start: 20250908, end: 20250913
  3. HYDROCORTISONE [Concomitant]
     Active Substance: HYDROCORTISONE
     Indication: Ill-defined disorder
     Dosage: APPLY TWICE DAILY FOR 7 DAYS, DURATION: 8 DAYS
     Dates: start: 20250903, end: 20250910
  4. ESTRIOL [Concomitant]
     Active Substance: ESTRIOL
     Indication: Ill-defined disorder
     Dosage: APPLY AT NIGHT ONCE DAILY FOR 2 WEEKS UNTIL SYM...
     Dates: start: 20250903
  5. HYDROMOL [Concomitant]
     Indication: Ill-defined disorder
     Dosage: USE AS DIRECTED AS SOAP SUBSTITUTE AND MOISTURISER
     Dates: start: 20250903

REACTIONS (1)
  - Photopsia [Recovered/Resolved]
